FAERS Safety Report 9786506 (Version 2)
Quarter: 2013Q4

REPORT INFORMATION
  Report Type: Spontaneous
  Country: IL (occurrence: IL)
  Receive Date: 20131227
  Receipt Date: 20131231
  Transmission Date: 20140711
  Serious: Yes (Death)
  Sender: FDA-Public Use
  Company Number: IL-JNJFOC-20131215751

PATIENT
  Age: 64 Year
  Sex: Male

DRUGS (1)
  1. IBRUTINIB [Suspect]
     Indication: MANTLE CELL LYMPHOMA
     Route: 048

REACTIONS (1)
  - Death [Fatal]
